FAERS Safety Report 25500668 (Version 1)
Quarter: 2025Q3

REPORT INFORMATION
  Report Type: Spontaneous
  Country: US (occurrence: US)
  Receive Date: 20250701
  Receipt Date: 20250701
  Transmission Date: 20251021
  Serious: No
  Sender: ABBVIE
  Company Number: US-ABBVIE-6344969

PATIENT

DRUGS (1)
  1. DURYSTA [Suspect]
     Active Substance: BIMATOPROST
     Indication: Product used for unknown indication
     Route: 050
     Dates: start: 20250414

REACTIONS (2)
  - Visual impairment [Not Recovered/Not Resolved]
  - Eye pain [Unknown]

NARRATIVE: CASE EVENT DATE: 20250101
